FAERS Safety Report 5718334-7 (Version None)
Quarter: 2008Q2

REPORT INFORMATION
  Report Type: 
  Country: None (occurrence: None)
  Receive Date: 20080425
  Receipt Date: 20080414
  Transmission Date: 20081010
  Serious: Yes (Disabling)
  Sender: FDA-Public Use
  Company Number: NO-WYE-G01411908

PATIENT
  Age: 52 Year
  Sex: Female

DRUGS (2)
  1. EFFEXOR [Suspect]
     Indication: DEPRESSION
     Route: 048
     Dates: start: 20070501, end: 20080301
  2. EFFEXOR [Suspect]
     Dosage: DOSING WAS SEQUENTIALLY REDUCED FROM 225 MG/DAY
     Route: 048
     Dates: start: 20080301

REACTIONS (6)
  - DIARRHOEA [None]
  - DISORIENTATION [None]
  - DRUG WITHDRAWAL SYNDROME [None]
  - DYSPHORIA [None]
  - INFLUENZA LIKE ILLNESS [None]
  - PARAESTHESIA [None]
